FAERS Safety Report 17084320 (Version 2)
Quarter: 2019Q4

REPORT INFORMATION
  Report Type: Other
  Country: US (occurrence: US)
  Receive Date: 20191127
  Receipt Date: 20191209
  Transmission Date: 20200122
  Serious: Yes (Other)
  Sender: FDA-Public Use
  Company Number: US-INTERCEPT-PM2019002103

PATIENT
  Sex: Female

DRUGS (2)
  1. OCALIVA [Suspect]
     Active Substance: OBETICHOLIC ACID
     Indication: PRIMARY BILIARY CHOLANGITIS
     Dosage: 5 MG, QW
     Route: 048
     Dates: start: 201906
  2. IRON [Concomitant]
     Active Substance: IRON
     Indication: PLATELET COUNT ABNORMAL

REACTIONS (2)
  - Platelet count abnormal [Unknown]
  - Intra-abdominal fluid collection [Unknown]
